FAERS Safety Report 7954361-7 (Version None)
Quarter: 2011Q4

REPORT INFORMATION
  Report Type: 
  Country: None (occurrence: None)
  Receive Date: 20111202
  Receipt Date: 20111128
  Transmission Date: 20120403
  Serious: Yes (Life-Threatening, Hospitalization, Other)
  Sender: FDA-Public Use
  Company Number: JP-JNJFOC-20110205814

PATIENT
  Sex: Female
  Weight: 53 kg

DRUGS (34)
  1. DOXORUBICIN HCL [Suspect]
     Dosage: CYCLE 2
     Route: 042
     Dates: start: 20091125, end: 20091125
  2. FENTANYL-100 [Concomitant]
     Route: 062
     Dates: start: 20101222, end: 20110104
  3. LENDORMIN [Concomitant]
     Indication: INSOMNIA
     Route: 048
  4. LOXONIN [Concomitant]
     Route: 048
     Dates: start: 20100630, end: 20101121
  5. EMEND [Concomitant]
     Route: 048
     Dates: start: 20100729, end: 20100730
  6. SEISHOKU [Concomitant]
     Route: 042
  7. CEFAZOLIN SODIUM [Concomitant]
     Indication: PRODUCT USED FOR UNKNOWN INDICATION
     Dosage: 2 DF
     Route: 048
     Dates: start: 20110126
  8. DOXORUBICIN HCL [Suspect]
     Dosage: CYCLE 4
     Route: 042
     Dates: start: 20100210, end: 20100210
  9. PURSENNID [Concomitant]
     Indication: CONSTIPATION
     Route: 048
     Dates: end: 20101121
  10. MOHRUS TAPE [Concomitant]
     Indication: BACK PAIN
     Route: 062
  11. CATLEP [Concomitant]
     Indication: BACK PAIN
     Route: 061
     Dates: end: 20101121
  12. SELBEX [Concomitant]
     Route: 048
     Dates: start: 20100630, end: 20101121
  13. EMEND [Concomitant]
     Indication: PROPHYLAXIS
     Route: 048
     Dates: start: 20100728, end: 20100728
  14. ANPEC (MORPHINE HYDROCHLORIDE) [Concomitant]
     Indication: PAIN
     Route: 054
     Dates: start: 20110107
  15. DOXORUBICIN HCL [Suspect]
     Dosage: CYCLE 6
     Route: 042
     Dates: start: 20100421, end: 20100421
  16. FENTANYL-100 [Concomitant]
     Indication: PRODUCT USED FOR UNKNOWN INDICATION
     Route: 062
     Dates: start: 20101228, end: 20110106
  17. DOXORUBICIN HCL [Suspect]
     Dosage: CYCLE 5
     Route: 042
     Dates: start: 20100317, end: 20100317
  18. PRIMPERAN TAB [Concomitant]
     Indication: NAUSEA
     Route: 048
     Dates: start: 20100806, end: 20100806
  19. DECADRON [Concomitant]
     Indication: PROPHYLAXIS
     Route: 048
     Dates: start: 20100728, end: 20100729
  20. DIBASIC POTASSIUM PHOSPHATE INORGANIC SALTS COMBINED DRUG [Concomitant]
     Indication: DRY MOUTH
     Dosage: 50 G
     Route: 048
     Dates: start: 20101221
  21. DOXORUBICIN HCL [Suspect]
     Dosage: CYCLE 7
     Route: 042
     Dates: start: 20100616, end: 20100616
  22. ANPEC (MORPHINE HYDROCHLORIDE) [Concomitant]
     Route: 054
     Dates: start: 20110107
  23. ANPEC (MORPHINE HYDROCHLORIDE) [Concomitant]
     Route: 054
     Dates: start: 20101220, end: 20110106
  24. PROCHLORPERAZINE [Concomitant]
     Indication: NAUSEA
     Dosage: 3 DF
     Route: 048
     Dates: start: 20110131, end: 20110216
  25. DOXORUBICIN HCL [Suspect]
     Dosage: CYCLE 9
     Route: 042
     Dates: start: 20100915, end: 20100915
  26. MAGMITT [Concomitant]
     Indication: CONSTIPATION
     Route: 048
     Dates: end: 20101121
  27. PRIMPERAN TAB [Concomitant]
     Route: 048
     Dates: end: 20101121
  28. CELECOXIB [Concomitant]
     Indication: PRODUCT USED FOR UNKNOWN INDICATION
     Dosage: 2 DF
     Route: 048
     Dates: start: 20110130
  29. DOXORUBICIN HCL [Suspect]
     Indication: OVARIAN CANCER RECURRENT
     Dosage: CYCLE 3
     Route: 042
     Dates: start: 20100106, end: 20100106
  30. DOXORUBICIN HCL [Suspect]
     Dosage: CYCLE 1
     Route: 042
     Dates: start: 20091023, end: 20091023
  31. ANPEC (MORPHINE HYDROCHLORIDE) [Concomitant]
     Indication: PRODUCT USED FOR UNKNOWN INDICATION
     Route: 054
     Dates: start: 20101220, end: 20110106
  32. DOXORUBICIN HCL [Suspect]
     Dosage: CYCLE 8
     Route: 042
     Dates: start: 20100728, end: 20100728
  33. DOXORUBICIN HCL [Suspect]
     Dosage: CYCLE 10
     Route: 042
     Dates: start: 20101108, end: 20101108
  34. ISODINE GARGLE [Concomitant]
     Indication: STOMATITIS
     Dosage: 10.0 DF
     Route: 049
     Dates: start: 20101213

REACTIONS (4)
  - SEPTIC SHOCK [None]
  - INTESTINAL OBSTRUCTION [None]
  - SEPSIS [None]
  - NEUTROPENIA [None]
